FAERS Safety Report 4884458-X (Version None)
Quarter: 2006Q1

REPORT INFORMATION
  Report Type: 
  Country: None (occurrence: None)
  Receive Date: 20060117
  Receipt Date: 20060104
  Transmission Date: 20060701
  Serious: Yes (Other)
  Sender: FDA-Public Use
  Company Number: 2006BH000176

PATIENT
  Sex: Male

DRUGS (1)
  1. PROMETHAZINE [Suspect]

REACTIONS (2)
  - INJECTION SITE REACTION [None]
  - NECROSIS [None]
